FAERS Safety Report 8771897 (Version 21)
Quarter: 2022Q4

REPORT INFORMATION
  Report Type: Spontaneous
  Country: GB (occurrence: GB)
  Receive Date: 20120906
  Receipt Date: 20221021
  Transmission Date: 20230112
  Serious: Yes (Other)
  Sender: FDA-Public Use
  Company Number: GB-JNJFOC-20120900342

PATIENT
  Age: 15 Year
  Sex: Female

DRUGS (9)
  1. CETIRIZINE HYDROCHLORIDE [Suspect]
     Active Substance: CETIRIZINE HYDROCHLORIDE
     Indication: Seasonal allergy
     Dosage: OCCASIONAL CETIRIZINE
     Route: 048
  2. CETIRIZINE HYDROCHLORIDE [Suspect]
     Active Substance: CETIRIZINE HYDROCHLORIDE
     Dosage: ONCE A DAY (OCCASIONAL CETIRIZINE), TABLET (UNCOATED, ORAL)
     Route: 048
  3. ABILIFY [Suspect]
     Active Substance: ARIPIPRAZOLE
     Indication: Bipolar disorder
     Dosage: 1 TRIMESTER, TABLET (UNCOATED, ORAL)
     Route: 048
  4. NEXPLANON [Interacting]
     Active Substance: ETONOGESTREL
     Indication: Contraception
     Dosage: IN FIRST TRIMESTER,PL 00065/0161
     Route: 058
  5. LAMICTAL [Suspect]
     Active Substance: LAMOTRIGINE
     Indication: Bipolar disorder
     Dosage: 3 / 1DAYS, 50 MILLIGRAM, 3 TIMES A DAY/ 150 MILLIGRAM DAILY TABLET (UNCOATED, ORAL)
     Route: 048
  6. LAMICTAL [Suspect]
     Active Substance: LAMOTRIGINE
     Dosage: 3 / 1DAYS,
     Route: 048
  7. LAMOTRIGINE [Suspect]
     Active Substance: LAMOTRIGINE
     Indication: Bipolar disorder
     Dosage: 50 MG, TID
     Route: 048
  8. LAMOTRIGINE [Suspect]
     Active Substance: LAMOTRIGINE
     Dosage: 50 MG, QD
     Route: 048
  9. ARIPIPRAZOLE [Suspect]
     Active Substance: ARIPIPRAZOLE
     Indication: Bipolar disorder
     Dosage: 1 TRIMESTER , TABLET (UNCOATED, ORAL)
     Route: 048

REACTIONS (9)
  - Abortion spontaneous [Unknown]
  - Intermenstrual bleeding [Unknown]
  - Drug interaction [Unknown]
  - Maternal exposure during pregnancy [Recovered/Resolved]
  - Pregnancy with contraceptive device [Recovered/Resolved]
  - Intermenstrual bleeding [Unknown]
  - Pregnancy on contraceptive [Recovered/Resolved]
  - Unintended pregnancy [Recovered/Resolved]
  - Pregnancy with implant contraceptive [Recovered/Resolved]
